FAERS Safety Report 18674739 (Version 1)
Quarter: 2020Q4

REPORT INFORMATION
  Report Type: Other
  Country: DK (occurrence: DK)
  Receive Date: 20201229
  Receipt Date: 20201229
  Transmission Date: 20210114
  Serious: Yes (Hospitalization, Other)
  Sender: FDA-Public Use
  Company Number: DK-ALNYLAM PHARMACEUTICALS, INC.-ALN-2020-002470

PATIENT

DRUGS (3)
  1. ONPATTRO [Suspect]
     Active Substance: PATISIRAN SODIUM
     Indication: AMYLOIDOSIS
     Dosage: 12 MILLIGRAM,  2MG/ML, Q3W
     Route: 042
     Dates: start: 20201123
  2. KALEORID [Concomitant]
     Active Substance: POTASSIUM CHLORIDE
     Indication: MINERAL SUPPLEMENTATION
     Dosage: UNK
     Dates: start: 20190927
  3. FURIX [Concomitant]
     Indication: DIURETIC THERAPY
     Dosage: UNK
     Dates: start: 20190927

REACTIONS (6)
  - Nocturnal dyspnoea [Recovering/Resolving]
  - Oedema peripheral [Recovering/Resolving]
  - Cough [Unknown]
  - Cardiac failure [Unknown]
  - Paraesthesia [Unknown]
  - Insomnia [Unknown]

NARRATIVE: CASE EVENT DATE: 20201124
